FAERS Safety Report 13069080 (Version 1)
Quarter: 2016Q4

REPORT INFORMATION
  Report Type: Spontaneous
  Country: FR (occurrence: FR)
  Receive Date: 20161228
  Receipt Date: 20161228
  Transmission Date: 20170207
  Serious: Yes (Life-Threatening)
  Sender: FDA-Public Use
  Company Number: FR-EMCURE PHARMS-2016HTG00310

PATIENT
  Age: 58 Year
  Sex: Male

DRUGS (5)
  1. CYTARABINE SANDOZ [Suspect]
     Active Substance: CYTARABINE
     Indication: B-CELL LYMPHOMA STAGE IV
     Dosage: 100 MG/M2, 2X/DAY
     Route: 042
  2. ENDOXAN [Suspect]
     Active Substance: CYCLOPHOSPHAMIDE
     Indication: B-CELL LYMPHOMA STAGE IV
     Dosage: 35 MG/KG, 1X/DAY
     Route: 042
     Dates: start: 20161106, end: 20161108
  3. BICNU [Suspect]
     Active Substance: CARMUSTINE
     Indication: B-CELL LYMPHOMA STAGE IV
     Dosage: 300 MG/M2, ONCE
     Route: 042
     Dates: start: 20161108, end: 20161108
  4. ETOPOSIDE TEVA [Suspect]
     Active Substance: ETOPOSIDE
     Indication: B-CELL LYMPHOMA STAGE IV
     Dosage: 100 MG/M2, 2X/DAY
     Route: 042
     Dates: start: 20161109, end: 20161112
  5. UROMITEXAN [Concomitant]
     Active Substance: MESNA
     Dosage: 50 MG/KG, 1X/DAY
     Route: 042
     Dates: start: 20161110, end: 20161112

REACTIONS (7)
  - Nausea [Unknown]
  - Drug eruption [Unknown]
  - Mucosal inflammation [None]
  - Sepsis syndrome [Not Recovered/Not Resolved]
  - Malnutrition [Unknown]
  - Oral herpes [Unknown]
  - Pericardial effusion [None]

NARRATIVE: CASE EVENT DATE: 20161118
